FAERS Safety Report 8594068 (Version 2)
Quarter: 2012Q4

REPORT INFORMATION
  Report Type: 
  Country: SE (occurrence: SE)
  Receive Date: 20120604
  Receipt Date: 20121026
  Transmission Date: 20130627
  Serious: Yes (Other)
  Sender: FDA-Public Use
  Company Number: PHHY2012SE046725

PATIENT
  Age: 32 Year
  Sex: Female

DRUGS (2)
  1. FTY 720 [Suspect]
     Dosage: 0.5 mg, QD
     Route: 048
     Dates: start: 20111020
  2. COPAXONE [Concomitant]
     Dosage: 20 mg/ml, UNK

REACTIONS (1)
  - Jaundice [Recovered/Resolved]
